FAERS Safety Report 23484459 (Version 1)
Quarter: 2024Q1

REPORT INFORMATION
  Report Type: Spontaneous
  Country: GB (occurrence: GB)
  Receive Date: 20240206
  Receipt Date: 20240206
  Transmission Date: 20240410
  Serious: Yes (Other)
  Sender: FDA-Public Use
  Company Number: GB-JNJFOC-20240200716

PATIENT
  Age: 68 Year
  Sex: Male
  Weight: 116 kg

DRUGS (9)
  1. IBUPROFEN [Suspect]
     Active Substance: IBUPROFEN
     Indication: Ill-defined disorder
     Route: 065
     Dates: start: 20240119
  2. AMOXICILLIN [Concomitant]
     Active Substance: AMOXICILLIN
     Indication: Ill-defined disorder
     Dosage: TAKE ONE 3 TIMES/DAY
     Route: 065
     Dates: start: 20240119, end: 20240124
  3. BROMOCRIPTINE MESYLATE [Concomitant]
     Active Substance: BROMOCRIPTINE MESYLATE
     Indication: Ill-defined disorder
     Dosage: M D U
     Route: 065
     Dates: start: 20231016
  4. EDOXABAN [Concomitant]
     Active Substance: EDOXABAN
     Indication: Ill-defined disorder
     Dosage: ONCE DAILY
     Route: 065
     Dates: start: 20231012
  5. HYDROCORTISONE [Concomitant]
     Active Substance: HYDROCORTISONE
     Indication: Ill-defined disorder
     Dosage: 10MG ON WAKING, 5MG AT LUNCH TIME AND 5MG AT 4P...
     Route: 065
     Dates: start: 20231016
  6. LEVOTHYROXINE [Concomitant]
     Active Substance: LEVOTHYROXINE\LEVOTHYROXINE SODIUM
     Indication: Ill-defined disorder
     Dosage: TAKE 1 EVERY DAY
     Route: 065
     Dates: start: 20231016
  7. METFORMIN [Concomitant]
     Active Substance: METFORMIN HYDROCHLORIDE
     Indication: Ill-defined disorder
     Dosage: TAKE TWO TABLETS, TWICE DAILY
     Route: 065
     Dates: start: 20231016
  8. NEBIDO [TESTOSTERONE UNDECANOATE] [Concomitant]
     Indication: Ill-defined disorder
     Dosage: EVERY 10 WEEKS
     Route: 065
     Dates: start: 20231016
  9. SIMVASTATIN [Concomitant]
     Active Substance: SIMVASTATIN
     Indication: Ill-defined disorder
     Dosage: TAKE ONE TABLET IN THE EVENING  TO REDUCE CHOLE...
     Route: 065
     Dates: start: 20231016

REACTIONS (1)
  - Syncope [Recovered/Resolved]

NARRATIVE: CASE EVENT DATE: 20240129
